FAERS Safety Report 7205056-9 (Version None)
Quarter: 2010Q4

REPORT INFORMATION
  Report Type: 
  Country: None (occurrence: None)
  Receive Date: 20101230
  Receipt Date: 20101217
  Transmission Date: 20110411
  Serious: Yes (Other)
  Sender: FDA-Public Use
  Company Number: PHEH2008US02653

PATIENT
  Sex: Female

DRUGS (57)
  1. ZOMETA [Suspect]
     Dosage: UNK
     Dates: end: 20030101
  2. AREDIA [Suspect]
     Dosage: 90 MG, QMO
     Route: 042
     Dates: start: 20000101
  3. ARIMIDEX [Concomitant]
     Dosage: 1MG DAILY
     Route: 048
  4. METHOTREXATE [Concomitant]
  5. PREDNISONE [Concomitant]
     Indication: RHEUMATOID ARTHRITIS
     Dosage: 5.MG / QD
     Route: 048
     Dates: start: 19900101
  6. NORVASC [Concomitant]
     Dosage: UNK
     Dates: start: 20010101
  7. ATENOLOL [Concomitant]
     Dosage: 50 MG / QD
     Route: 048
     Dates: start: 19980101
  8. DEMEROL [Concomitant]
     Dosage: 50 MG
  9. DROPERIDOL [Concomitant]
     Dosage: .625 MG / DAILY
  10. PERCOCET [Concomitant]
     Dosage: UNK
  11. TORADOL [Concomitant]
     Dosage: 30 MG / DAILY
  12. TAMOXIFEN CITRATE [Concomitant]
     Dosage: 10 MG / BID
  13. ELAVIL [Concomitant]
     Dosage: 50 MG / QD
  14. XANAX [Concomitant]
     Dosage: 0.5 MG  / BID
  15. ULTRAM [Concomitant]
     Dosage: 50 MG / Q4
  16. VIOXX [Concomitant]
     Dosage: 12.5 MG / BID
     Route: 048
  17. SOLU-CORTEF [Concomitant]
     Dosage: 100 MG
  18. FOLIC ACID [Concomitant]
     Dosage: UNK / QD
     Route: 048
  19. MORPHINE [Concomitant]
     Dosage: 2-4  MG / Q 1-2 HRS PRN
  20. VALIUM [Concomitant]
     Dosage: UNK
  21. FOLATE SODIUM [Concomitant]
     Dosage: UNK
  22. LASIX [Concomitant]
     Dosage: 40 MG 3 BY MOUTH, DAILY
  23. CRESTOR [Concomitant]
     Dosage: 5 MG
  24. WARFARIN [Concomitant]
     Dosage: 2.5 MG
  25. LOVAZA [Concomitant]
     Dosage: 2 TABLETS, DAILY
  26. RADIATION THERAPY [Concomitant]
  27. CLINDAMYCIN [Concomitant]
  28. AROMASIN [Concomitant]
  29. DARVOCET-N 100 [Concomitant]
  30. AMBIEN [Concomitant]
  31. COLACE [Concomitant]
  32. PROCRIT                            /00909301/ [Concomitant]
  33. NEUPOGEN [Concomitant]
  34. TAXOTERE [Concomitant]
  35. CIPRO [Concomitant]
  36. XELODA [Concomitant]
     Dosage: UNK
  37. CALCITRIOL [Concomitant]
     Dosage: UNK
  38. COUMADIN [Concomitant]
  39. CLONIDINE [Concomitant]
     Dosage: UNK
  40. ADRIAMYCIN PFS [Concomitant]
     Dosage: UNK
  41. FELDENE [Concomitant]
  42. HYDRODIURIL [Concomitant]
  43. HALCION [Concomitant]
  44. SENOKOT                                 /USA/ [Concomitant]
  45. LEXAPRO [Concomitant]
  46. CYMBALTA [Concomitant]
  47. AMITRIPTYLINE [Concomitant]
  48. FASLODEX [Concomitant]
  49. METOPROLOL [Concomitant]
  50. ASPIRIN [Concomitant]
  51. NEXIUM [Concomitant]
  52. LYRICA [Concomitant]
  53. FLEXERIL [Concomitant]
  54. CELEBREX [Concomitant]
  55. LIPITOR [Concomitant]
  56. TENORMIN [Concomitant]
  57. KLOR-CON [Concomitant]

REACTIONS (64)
  - ANAEMIA [None]
  - ANHEDONIA [None]
  - ANXIETY [None]
  - ASTHENIA [None]
  - ATRIAL FIBRILLATION [None]
  - ATRIAL FLUTTER [None]
  - BASAL CELL CARCINOMA [None]
  - BONE DENSITY DECREASED [None]
  - BONE LESION [None]
  - BONE PAIN [None]
  - BRAIN CANCER METASTATIC [None]
  - BURSITIS [None]
  - CEREBRAL ATROPHY [None]
  - CERVICAL CORD COMPRESSION [None]
  - DEEP VEIN THROMBOSIS [None]
  - DENTAL CARIES [None]
  - DENTURE WEARER [None]
  - DISABILITY [None]
  - DIVERTICULITIS [None]
  - EYE DISORDER [None]
  - FIBROMYALGIA [None]
  - GRANULOMA [None]
  - HAEMATOMA [None]
  - HAND DEFORMITY [None]
  - HYPERLIPIDAEMIA [None]
  - HYPOKALAEMIA [None]
  - INJURY [None]
  - INTERVERTEBRAL DISC DEGENERATION [None]
  - INTERVERTEBRAL DISC DISORDER [None]
  - INTERVERTEBRAL DISC PROTRUSION [None]
  - IRRITABLE BOWEL SYNDROME [None]
  - KYPHOSIS [None]
  - LACTOSE INTOLERANCE [None]
  - LUMBAR SPINAL STENOSIS [None]
  - LUNG DISORDER [None]
  - MENINGIOMA [None]
  - METASTASES TO BONE [None]
  - METASTASES TO SPINE [None]
  - MUSCULOSKELETAL DISCOMFORT [None]
  - NECK PAIN [None]
  - NEOPLASM MALIGNANT [None]
  - NEUROPATHY PERIPHERAL [None]
  - ORTHOSIS USER [None]
  - OSTEITIS [None]
  - OSTEOARTHRITIS [None]
  - OSTEOMYELITIS [None]
  - OSTEONECROSIS OF JAW [None]
  - PAIN [None]
  - PARAESTHESIA [None]
  - PATHOLOGICAL FRACTURE [None]
  - PERICARDIAL EFFUSION [None]
  - PERIODONTAL INFECTION [None]
  - PHARYNGEAL ERYTHEMA [None]
  - PLEURAL EFFUSION [None]
  - PRIMARY SEQUESTRUM [None]
  - PULMONARY EMBOLISM [None]
  - PYOGENIC GRANULOMA [None]
  - RIB DEFORMITY [None]
  - RIB FRACTURE [None]
  - SCOLIOSIS [None]
  - THROMBOSIS [None]
  - TIC [None]
  - TOOTH ABSCESS [None]
  - VERTEBRAL WEDGING [None]
